FAERS Safety Report 13151884 (Version 1)
Quarter: 2017Q1

REPORT INFORMATION
  Report Type: Spontaneous
  Country: FR (occurrence: FR)
  Receive Date: 20170125
  Receipt Date: 20170125
  Transmission Date: 20170428
  Serious: Yes (Hospitalization)
  Sender: FDA-Public Use
  Company Number: FR-PFIZER INC-3168892

PATIENT
  Age: 56 Year
  Sex: Female

DRUGS (3)
  1. CARBOPLATIN. [Suspect]
     Active Substance: CARBOPLATIN
     Dosage: 635 MG
     Route: 042
     Dates: start: 20160120, end: 20160120
  2. PACLITAXEL KABI [Suspect]
     Active Substance: PACLITAXEL
     Dosage: 350 MG
     Route: 042
     Dates: start: 20160120, end: 20160120
  3. AVASTIN [Suspect]
     Active Substance: BEVACIZUMAB
     Dosage: 1470 MG
     Route: 042
     Dates: start: 20160120, end: 20160120

REACTIONS (1)
  - Anaphylactic shock [Recovered/Resolved]

NARRATIVE: CASE EVENT DATE: 20160120
